FAERS Safety Report 9445462 (Version 4)
Quarter: 2014Q1

REPORT INFORMATION
  Report Type: Report from Study
  Country: US (occurrence: US)
  Receive Date: 20130807
  Receipt Date: 20140123
  Transmission Date: 20141002
  Serious: Yes (Congenital Anomaly, Other)
  Sender: FDA-Public Use
  Company Number: US-GILEAD-2013-0080701

PATIENT
  Age: 0 None
  Sex: Female
  Weight: 2.84 kg

DRUGS (3)
  1. EMTRICITABINE/RILPIVIRINE/TENOFOVIR DF [Suspect]
     Indication: HIV INFECTION
     Dosage: 1 DF, QD
     Route: 064
     Dates: start: 20130108, end: 20130626
  2. ZIDOVUDINE [Suspect]
     Indication: HIV INFECTION
     Dosage: 1 DF, QD
     Route: 064
     Dates: start: 20130626, end: 20130626
  3. ZIDOVUDINE [Suspect]
     Dosage: 2 DF, QD
     Route: 064
     Dates: start: 20130626, end: 20130626

REACTIONS (3)
  - Hypoxic-ischaemic encephalopathy [Unknown]
  - Premature baby [Unknown]
  - Foetal exposure during pregnancy [Recovered/Resolved]
